FAERS Safety Report 11909144 (Version 2)
Quarter: 2016Q1

REPORT INFORMATION
  Report Type: Spontaneous
  Country: US (occurrence: US)
  Receive Date: 20160112
  Receipt Date: 20160113
  Transmission Date: 20160526
  Serious: Yes (Other)
  Sender: FDA-Public Use
  Company Number: US-PFIZER INC-2016000605

PATIENT
  Age: 64 Year
  Sex: Female
  Weight: 70.31 kg

DRUGS (8)
  1. PREMARIN [Concomitant]
     Active Substance: ESTROGENS, CONJUGATED
     Indication: VULVOVAGINAL DRYNESS
     Dosage: ONE HALF OF A 1.25MG TABLET DAILY
     Dates: end: 2014
  2. ATENOLOL. [Concomitant]
     Active Substance: ATENOLOL
     Indication: BLOOD PRESSURE ABNORMAL
     Dosage: 50 MG, 1X/DAY
  3. EXCEDRIN MIGRAINE [Concomitant]
     Active Substance: ACETAMINOPHEN\ASPIRIN\CAFFEINE
     Indication: MIGRAINE
     Dosage: 1 DF, USUALLY MAYBE TWICE A WEEK.
     Dates: start: 2012
  4. LYRICA [Suspect]
     Active Substance: PREGABALIN
     Indication: GENITAL HERPES
     Dosage: 100 MG, 3X/DAY
  5. LYRICA [Suspect]
     Active Substance: PREGABALIN
     Dosage: 75 MG, 3X/DAY
  6. SYNTHROID [Concomitant]
     Active Substance: LEVOTHYROXINE SODIUM
     Dosage: 1.12 UG, DAILY
  7. TUMS [Concomitant]
     Active Substance: CALCIUM CARBONATE
     Indication: GASTROOESOPHAGEAL REFLUX DISEASE
     Dosage: UNK UNK, AS NEEDED
     Dates: start: 201510
  8. SYNTHROID [Concomitant]
     Active Substance: LEVOTHYROXINE SODIUM
     Indication: HYPOTHYROIDISM
     Dosage: 1 UG, DAILY

REACTIONS (7)
  - Weight increased [Not Recovered/Not Resolved]
  - Influenza [Unknown]
  - Pain in extremity [Not Recovered/Not Resolved]
  - Bedridden [Unknown]
  - Memory impairment [Not Recovered/Not Resolved]
  - Product quality issue [Unknown]
  - Ankle fracture [Unknown]

NARRATIVE: CASE EVENT DATE: 2011
